FAERS Safety Report 23100828 (Version 1)
Quarter: 2023Q4

REPORT INFORMATION
  Report Type: Spontaneous
  Country: MX (occurrence: MX)
  Receive Date: 20231024
  Receipt Date: 20231024
  Transmission Date: 20240109
  Serious: Yes (Hospitalization)
  Sender: FDA-Public Use
  Company Number: MX-NOVOPROD-1128358

PATIENT
  Age: 22 Year
  Sex: Male

DRUGS (1)
  1. NOVOEIGHT [Suspect]
     Active Substance: ANTIHEMOPHILIC FACTOR, HUMAN RECOMBINANT
     Indication: Factor VIII deficiency
     Dosage: 2000 IU, TIW(PROFILAXIS. STARTED 2020-2021. TAKEN 3 TIMES A WEEK)

REACTIONS (1)
  - Haematuria [Recovered/Resolved]
